FAERS Safety Report 10108384 (Version 1)
Quarter: 2014Q2

REPORT INFORMATION
  Report Type: Spontaneous
  Country: US (occurrence: US)
  Receive Date: 20140425
  Receipt Date: 20140425
  Transmission Date: 20141212
  Serious: Yes (Other)
  Sender: FDA-Public Use
  Company Number: US-ABBVIE-14P-163-1228340-00

PATIENT
  Age: 67 Year
  Sex: Female
  Weight: 54.48 kg

DRUGS (8)
  1. SYNTHROID [Suspect]
     Indication: HYPOTHYROIDISM
     Dates: start: 201307, end: 201403
  2. SYNTHROID [Suspect]
     Indication: HYPOTHYROIDISM
     Dates: start: 201403
  3. LEVOXYL [Suspect]
     Indication: HYPOTHYROIDISM
     Dates: end: 201307
  4. LEVOXYL [Suspect]
     Dates: start: 201403, end: 201403
  5. UNITHROID [Suspect]
     Indication: PRODUCT USED FOR UNKNOWN INDICATION
  6. AMBIEN [Concomitant]
     Indication: PRODUCT USED FOR UNKNOWN INDICATION
  7. CALCIUM [Concomitant]
     Indication: SUPPLEMENTATION THERAPY
  8. PRAVASTATIN [Concomitant]
     Indication: BLOOD CHOLESTEROL INCREASED

REACTIONS (11)
  - Chest discomfort [Not Recovered/Not Resolved]
  - Allergic respiratory symptom [Not Recovered/Not Resolved]
  - Paraesthesia [Not Recovered/Not Resolved]
  - Masked facies [Not Recovered/Not Resolved]
  - Oral discomfort [Recovered/Resolved]
  - Muscle tightness [Recovered/Resolved]
  - Masked facies [Recovered/Resolved]
  - Oral discomfort [Recovered/Resolved]
  - Muscle tightness [Recovered/Resolved]
  - Masked facies [Recovered/Resolved]
  - Drug hypersensitivity [Unknown]
